FAERS Safety Report 25754005 (Version 1)
Quarter: 2025Q3

REPORT INFORMATION
  Report Type: Spontaneous
  Country: CN (occurrence: CN)
  Receive Date: 20250903
  Receipt Date: 20250903
  Transmission Date: 20251021
  Serious: Yes (Hospitalization)
  Sender: BEIGENE
  Company Number: CN-Eisai-EC-2025-188358

PATIENT
  Age: 51 Year
  Weight: 70 kg

DRUGS (2)
  1. TISLELIZUMAB [Suspect]
     Active Substance: TISLELIZUMAB
     Indication: Hepatic cancer
  2. LENVATINIB [Suspect]
     Active Substance: LENVATINIB
     Indication: Hepatic cancer

REACTIONS (1)
  - Gastric perforation [Unknown]
